FAERS Safety Report 10164046 (Version 1)
Quarter: 2014Q2

REPORT INFORMATION
  Report Type: Spontaneous
  Country: US (occurrence: US)
  Receive Date: 20140510
  Receipt Date: 20140510
  Transmission Date: 20141212
  Serious: No
  Sender: FDA-Public Use
  Company Number: US-BRISTOL-MYERS SQUIBB COMPANY-19857127

PATIENT
  Sex: Male
  Weight: 93.42 kg

DRUGS (8)
  1. BYETTA [Suspect]
     Indication: TYPE 2 DIABETES MELLITUS
     Route: 058
  2. KOMBIGLYZE XR [Suspect]
     Dosage: 1DF:2.5/1000 UNITS NOS
  3. METFORMIN [Concomitant]
  4. HYDROCHLOROTHIAZIDE [Concomitant]
  5. ALTACE [Concomitant]
  6. COZAAR [Concomitant]
  7. LIPITOR [Concomitant]
  8. ZETIA [Concomitant]

REACTIONS (2)
  - Drug ineffective [Unknown]
  - Renal disorder [Unknown]
